FAERS Safety Report 17698324 (Version 3)
Quarter: 2020Q3

REPORT INFORMATION
  Report Type: Spontaneous
  Country: US (occurrence: US)
  Receive Date: 20200423
  Receipt Date: 20200825
  Transmission Date: 20201102
  Serious: Yes (Other)
  Sender: FDA-Public Use
  Company Number: US-PFIZER INC-2020117295

PATIENT
  Age: 47 Year
  Sex: Female

DRUGS (2)
  1. XELJANZ XR [Suspect]
     Active Substance: TOFACITINIB CITRATE
     Dosage: 11 MG, 1X/DAY
     Route: 048
     Dates: start: 202003
  2. XELJANZ XR [Suspect]
     Active Substance: TOFACITINIB CITRATE
     Indication: RHEUMATOID ARTHRITIS
     Dosage: 11 MG, 1X/DAY
     Route: 048
     Dates: start: 20200124, end: 20200316

REACTIONS (4)
  - Condition aggravated [Unknown]
  - COVID-19 [Unknown]
  - Intentional product misuse [Unknown]
  - Depressed mood [Unknown]

NARRATIVE: CASE EVENT DATE: 20200316
